FAERS Safety Report 23598346 (Version 1)
Quarter: 2024Q1

REPORT INFORMATION
  Report Type: Report from Study
  Country: US (occurrence: US)
  Receive Date: 20240305
  Receipt Date: 20240305
  Transmission Date: 20240410
  Serious: Yes (Hospitalization)
  Sender: FDA-Public Use
  Company Number: US-ABBVIE-5662587

PATIENT
  Sex: Female

DRUGS (1)
  1. SKYRIZI [Suspect]
     Active Substance: RISANKIZUMAB-RZAA
     Indication: Psoriasis
     Dosage: FORM STRENGTH: 150 MILLIGRAM?FREQUENCY TEXT: WEEK 0 WEEK 4, THEN EVERY 12 WEEKS
     Route: 058
     Dates: start: 202401

REACTIONS (2)
  - Medical procedure [Unknown]
  - Malaise [Unknown]

NARRATIVE: CASE EVENT DATE: 20240101
